FAERS Safety Report 7994479-6 (Version None)
Quarter: 2011Q4

REPORT INFORMATION
  Report Type: 
  Country: None (occurrence: None)
  Receive Date: 20111220
  Receipt Date: 20111212
  Transmission Date: 20120403
  Serious: Yes (Hospitalization)
  Sender: FDA-Public Use
  Company Number: ES-UCBSA-047714

PATIENT
  Age: 39 Year
  Sex: Male

DRUGS (8)
  1. OMEPRAZOLE [Suspect]
     Dosage: TOTAL DAILY DOSE: 40 MG
     Dates: start: 20060101, end: 20110101
  2. HYDROCHLOROTHIAZIDE [Concomitant]
     Dosage: AILY DOSE: 25 MG
     Dates: start: 20060101
  3. LOSARTAN POTASSIUM [Concomitant]
     Dosage: DOSE: 50 MG
     Dates: start: 20060101
  4. SIMVASTATIN [Concomitant]
     Dosage: DAILY DOSE: 20 MG
     Dates: start: 20060101
  5. ACTETILSALICILIC ACID [Concomitant]
     Dosage: DAILY DOSE: 100 MG
     Dates: start: 20060101
  6. ATENOLOL [Concomitant]
     Dosage: DAILY DOSE: 50 MG
     Dates: start: 20060101
  7. ACENOCUMAROL [Concomitant]
     Dosage: DAILY DOSE: 3 MG
     Dates: start: 20060101
  8. AMLODIPINO [Concomitant]
     Dosage: DAILY DOSE: 5 MG
     Dates: start: 20060101

REACTIONS (2)
  - HYPOCALCAEMIA [None]
  - HYPOMAGNESAEMIA [None]
